FAERS Safety Report 22050877 (Version 2)
Quarter: 2023Q1

REPORT INFORMATION
  Report Type: Spontaneous
  Country: IT (occurrence: IT)
  Receive Date: 20230301
  Receipt Date: 20230316
  Transmission Date: 20230418
  Serious: Yes (Hospitalization)
  Sender: FDA-Public Use
  Company Number: IT-TEVA-2023-IT-2860722

PATIENT
  Age: 56 Year
  Sex: Male
  Weight: 62 kg

DRUGS (3)
  1. EPIRUBICIN [Suspect]
     Active Substance: EPIRUBICIN
     Indication: Hepatocellular carcinoma
     Dosage: 50 MG
     Route: 050
  2. EPIRUBICIN [Suspect]
     Active Substance: EPIRUBICIN
     Dosage: 25 MG
     Route: 050
  3. Lipiodiol [Concomitant]
     Indication: Hepatocellular carcinoma
     Route: 050

REACTIONS (4)
  - Alopecia [Unknown]
  - Livedo reticularis [Recovered/Resolved]
  - Inflammation [Recovered/Resolved]
  - Administration site extravasation [Recovered/Resolved]
